FAERS Safety Report 5637909-7 (Version None)
Quarter: 2008Q1

REPORT INFORMATION
  Report Type: 
  Country: None (occurrence: None)
  Receive Date: 20080221
  Receipt Date: 20080208
  Transmission Date: 20080703
  Serious: No
  Sender: FDA-Public Use
  Company Number: TPA2008A00188

PATIENT
  Age: 86 Year
  Sex: Male

DRUGS (2)
  1. ROZEREM [Suspect]
     Indication: SLEEP DISORDER
     Dosage: 8 MG, ONCE, PER ORAL
     Route: 048
  2. TRAVOPROST             (TRAVOPROST) [Concomitant]

REACTIONS (1)
  - SELF-MEDICATION [None]
